FAERS Safety Report 21226816 (Version 1)
Quarter: 2022Q3

REPORT INFORMATION
  Report Type: Spontaneous
  Country: CN (occurrence: CN)
  Receive Date: 20220818
  Receipt Date: 20220818
  Transmission Date: 20221026
  Serious: Yes (Other)
  Sender: FDA-Public Use
  Company Number: None

PATIENT
  Age: 50 Year
  Sex: Female
  Weight: 50 kg

DRUGS (15)
  1. CYCLOPHOSPHAMIDE [Suspect]
     Active Substance: CYCLOPHOSPHAMIDE
     Indication: Breast cancer recurrent
     Dosage: 0.7 G ONCE DAILY, DILUTED WITH 100 ML OF 0.9% SODIUM CHLORIDE INJECTION
     Route: 041
     Dates: start: 20220726, end: 20220726
  2. CYCLOPHOSPHAMIDE [Suspect]
     Active Substance: CYCLOPHOSPHAMIDE
     Indication: Breast cancer metastatic
  3. CYCLOPHOSPHAMIDE [Suspect]
     Active Substance: CYCLOPHOSPHAMIDE
     Indication: Breast cancer stage IV
  4. CYCLOPHOSPHAMIDE [Suspect]
     Active Substance: CYCLOPHOSPHAMIDE
     Indication: Triple negative breast cancer
  5. SODIUM CHLORIDE [Suspect]
     Active Substance: SODIUM CHLORIDE
     Indication: Medication dilution
     Dosage: 100 ML ONCE DAILY, DILUTED IN 0.7 G OF CYCLOPHOSPHAMIDE INJECTION
     Route: 041
     Dates: start: 20220726, end: 20220726
  6. SODIUM CHLORIDE [Suspect]
     Active Substance: SODIUM CHLORIDE
     Dosage: 250 ML ONCE DAILY, DILUTED IN 90 MG OF DOCETAXEL INJECTION
     Route: 041
     Dates: start: 20220726, end: 20220726
  7. DEXTROSE MONOHYDRATE [Suspect]
     Active Substance: DEXTROSE MONOHYDRATE
     Indication: Medication dilution
     Dosage: 250 ML ONCE DAILY, DILUTED IN 60 MG OF DOXORUBICIN HYDROCHLORIDE LIPOSOMAL INJECTION
     Route: 041
     Dates: start: 20220726, end: 20220726
  8. DOCETAXEL [Suspect]
     Active Substance: DOCETAXEL
     Indication: Breast cancer recurrent
     Dosage: 90 MG ONCE DAILY, DILUTED WITH 250 ML OF 0.9% SODIUM CHLORIDE INJECTION
     Route: 041
     Dates: start: 20220726, end: 20220726
  9. DOCETAXEL [Suspect]
     Active Substance: DOCETAXEL
     Indication: Breast cancer metastatic
  10. DOCETAXEL [Suspect]
     Active Substance: DOCETAXEL
     Indication: Breast cancer stage IV
  11. DOCETAXEL [Suspect]
     Active Substance: DOCETAXEL
     Indication: Triple negative breast cancer
  12. DOXORUBICIN HYDROCHLORIDE [Suspect]
     Active Substance: DOXORUBICIN HYDROCHLORIDE
     Indication: Breast cancer recurrent
     Dosage: 60 MG ONCE DAILY, DILUTED WITH 250 ML OF 5% GLUCOSE INJECTION
     Route: 041
     Dates: start: 20220726, end: 20220726
  13. DOXORUBICIN HYDROCHLORIDE [Suspect]
     Active Substance: DOXORUBICIN HYDROCHLORIDE
     Indication: Breast cancer metastatic
  14. DOXORUBICIN HYDROCHLORIDE [Suspect]
     Active Substance: DOXORUBICIN HYDROCHLORIDE
     Indication: Breast cancer stage IV
  15. DOXORUBICIN HYDROCHLORIDE [Suspect]
     Active Substance: DOXORUBICIN HYDROCHLORIDE
     Indication: Triple negative breast cancer

REACTIONS (2)
  - White blood cell count decreased [Recovered/Resolved]
  - Neutrophil count decreased [Recovered/Resolved]

NARRATIVE: CASE EVENT DATE: 20220730
